FAERS Safety Report 14479520 (Version 8)
Quarter: 2025Q1

REPORT INFORMATION
  Report Type: Spontaneous
  Country: ES (occurrence: ES)
  Receive Date: 20180202
  Receipt Date: 20250131
  Transmission Date: 20250409
  Serious: Yes (Death, Hospitalization, Other)
  Sender: AUROBINDO
  Company Number: ES-AGEMED-905447238

PATIENT
  Age: 72 Year
  Sex: Female

DRUGS (11)
  1. ALPRAZOLAM [Interacting]
     Active Substance: ALPRAZOLAM
     Indication: Product used for unknown indication
     Dosage: 1 MILLIGRAM, ONCE A DAY
     Route: 048
     Dates: start: 201404
  2. AMITRIPTYLINE [Suspect]
     Active Substance: AMITRIPTYLINE
     Indication: Depression
     Route: 048
     Dates: start: 201404
  3. AMITRIPTYLINE [Suspect]
     Active Substance: AMITRIPTYLINE
     Route: 065
  4. MIRTAZAPINE [Suspect]
     Active Substance: MIRTAZAPINE
     Indication: Depression
     Route: 048
  5. FLUOXETINE [Suspect]
     Active Substance: FLUOXETINE HYDROCHLORIDE
     Indication: Depression
     Route: 065
  6. BRINTELLIX [Interacting]
     Active Substance: VORTIOXETINE HYDROBROMIDE
     Indication: Depression
     Dosage: 5 MILLIGRAM, ONCE A DAY
     Route: 048
     Dates: start: 20160310, end: 20160402
  7. BRINTELLIX [Interacting]
     Active Substance: VORTIOXETINE HYDROBROMIDE
     Dosage: 10 MILLIGRAM, ONCE A DAY
     Route: 065
  8. LUDIOMIL [Interacting]
     Active Substance: MAPROTILINE HYDROCHLORIDE
     Indication: Depression
     Route: 065
  9. LUDIOMIL [Interacting]
     Active Substance: MAPROTILINE HYDROCHLORIDE
     Dosage: 18.75 MG, TWO TIMES A DAY
     Route: 048
     Dates: start: 201404
  10. LUDIOMIL [Interacting]
     Active Substance: MAPROTILINE HYDROCHLORIDE
     Route: 065
     Dates: start: 201404, end: 201404
  11. ASENAPINE MALEATE [Suspect]
     Active Substance: ASENAPINE MALEATE
     Indication: Depression
     Route: 048

REACTIONS (10)
  - Cerebrovascular accident [Fatal]
  - Aspiration [Fatal]
  - Hyponatraemia [Fatal]
  - Embolic stroke [Fatal]
  - Depressed level of consciousness [Fatal]
  - Cardiac arrest [Fatal]
  - Seizure [Fatal]
  - Polydipsia [Fatal]
  - Respiration abnormal [Fatal]
  - Drug interaction [Unknown]

NARRATIVE: CASE EVENT DATE: 20160401
